FAERS Safety Report 19925810 (Version 8)
Quarter: 2025Q1

REPORT INFORMATION
  Report Type: Report from Study
  Country: US (occurrence: US)
  Receive Date: 20211006
  Receipt Date: 20250319
  Transmission Date: 20250409
  Serious: Yes (Life-Threatening, Hospitalization)
  Sender: TAKEDA
  Company Number: US-TAKEDA-2021TUS061157

PATIENT
  Age: 36 Year
  Sex: Female
  Weight: 59 kg

DRUGS (85)
  1. TEDUGLUTIDE [Suspect]
     Active Substance: TEDUGLUTIDE
     Indication: Short-bowel syndrome
     Dosage: 1 MILLIGRAM, QD
     Dates: start: 20210128, end: 20210503
  2. TEDUGLUTIDE [Suspect]
     Active Substance: TEDUGLUTIDE
     Dosage: 3 MILLIGRAM, QD
     Dates: start: 20210505, end: 20211222
  3. TEDUGLUTIDE [Suspect]
     Active Substance: TEDUGLUTIDE
     Dosage: 3 MILLIGRAM, QD
     Dates: start: 20211227
  4. TEDUGLUTIDE [Suspect]
     Active Substance: TEDUGLUTIDE
  5. METHYLPREDNISOLONE ACETATE [Concomitant]
     Active Substance: METHYLPREDNISOLONE ACETATE
     Indication: Pneumonia
     Dosage: 40 MILLIGRAM, QD
     Dates: start: 20200827, end: 20200827
  6. METOPROLOL TARTRATE [Concomitant]
     Active Substance: METOPROLOL TARTRATE
     Indication: Tachycardia
     Dosage: 5 MILLIGRAM, QD
     Dates: start: 20200827, end: 20200827
  7. Meropenem acic [Concomitant]
     Indication: Sepsis
     Dosage: 1 GRAM, QD
     Dates: start: 20200826, end: 20200829
  8. CLONAZEPAM [Concomitant]
     Active Substance: CLONAZEPAM
     Indication: Anxiety
     Dosage: 0.5 MILLIGRAM, BID
     Dates: start: 20200826, end: 20200827
  9. ELIQUIS [Concomitant]
     Active Substance: APIXABAN
     Indication: Deep vein thrombosis
     Dosage: 5 MILLIGRAM, BID
     Dates: start: 20210405, end: 20210717
  10. LOPERAMIDE [Concomitant]
     Active Substance: LOPERAMIDE
     Indication: Diarrhoea
     Dosage: 6 MILLIGRAM, BID
  11. LOPERAMIDE [Concomitant]
     Active Substance: LOPERAMIDE
     Dosage: 4 MILLIGRAM, QID
     Dates: start: 20200809, end: 20200812
  12. LOPERAMIDE [Concomitant]
     Active Substance: LOPERAMIDE
     Dosage: 2 MILLIGRAM, QD
     Dates: start: 20201104, end: 20210717
  13. LOMOTIL [Concomitant]
     Active Substance: ATROPINE SULFATE\DIPHENOXYLATE HYDROCHLORIDE
     Indication: Malabsorption
  14. GLUTAMINE [Concomitant]
     Active Substance: GLUTAMINE
     Indication: Hypovitaminosis
     Dosage: 5 GRAM, TID
  15. GLUTAMINE [Concomitant]
     Active Substance: GLUTAMINE
     Indication: Mineral deficiency
     Dosage: 15 GRAM, BID
     Dates: start: 20210503
  16. GUAR GUM [Concomitant]
     Active Substance: GUAR GUM
     Indication: Malabsorption
     Dosage: 4 GRAM, TID
  17. GUAR GUM [Concomitant]
     Active Substance: GUAR GUM
     Dosage: UNK UNK, QID
     Dates: start: 20180919
  18. LYRICA [Concomitant]
     Active Substance: PREGABALIN
     Indication: Anxiety
     Dosage: 50 MILLIGRAM, BID
     Dates: start: 20200807, end: 20200825
  19. MAGNESIUM GLUCONATE [Concomitant]
     Active Substance: MAGNESIUM GLUCONATE
     Dosage: 500 MILLIGRAM, BID
  20. OXCARBAZEPINE [Concomitant]
     Active Substance: OXCARBAZEPINE
  21. SMOFLIPID [Concomitant]
     Active Substance: FISH OIL\MEDIUM-CHAIN TRIGLYCERIDES\OLIVE OIL\SOYBEAN OIL
  22. TIZANIDINE [Concomitant]
     Active Substance: TIZANIDINE
     Dosage: 4 MILLIGRAM, TID
  23. TPN [Concomitant]
     Active Substance: AMINO ACIDS\DEXTROSE\ELECTROLYTES NOS\SOYBEAN OIL
  24. ACETAMINOPHEN [Concomitant]
     Active Substance: ACETAMINOPHEN
     Indication: Procedural pain
  25. OXYCODONE [Concomitant]
     Active Substance: OXYCODONE
     Indication: Procedural pain
     Dates: start: 20210930, end: 20211016
  26. APIXABAN [Concomitant]
     Active Substance: APIXABAN
     Dosage: 5 MILLIGRAM, BID
  27. HYDROMORPHONE [Concomitant]
     Active Substance: HYDROMORPHONE
     Indication: Pain
  28. HYDROMORPHONE [Concomitant]
     Active Substance: HYDROMORPHONE
     Dates: start: 20211203, end: 20211208
  29. DIPHENHYDRAMINE [Concomitant]
     Active Substance: DIPHENHYDRAMINE
  30. APIXABAN [Concomitant]
     Active Substance: APIXABAN
     Dosage: UNK, BID
  31. Pancrelipase 20000 [Concomitant]
     Indication: Malabsorption
     Dosage: 2 DOSAGE FORM, TID
     Dates: start: 20230913
  32. Vivonex T.E.N. [Concomitant]
  33. CREON [Concomitant]
     Active Substance: PANCRELIPASE AMYLASE\PANCRELIPASE LIPASE\PANCRELIPASE PROTEASE
  34. VITAMIN D2 [Concomitant]
     Active Substance: ERGOCALCIFEROL
     Dosage: 50 MICROGRAM, BID
  35. VIMPAT [Concomitant]
     Active Substance: LACOSAMIDE
     Indication: Anticonvulsant drug level
     Dosage: 100 MILLIGRAM, BID
  36. VIMPAT [Concomitant]
     Active Substance: LACOSAMIDE
     Indication: Seizure
     Dosage: 200 MILLIGRAM, QD
     Dates: start: 20210718, end: 20211130
  37. VIMPAT [Concomitant]
     Active Substance: LACOSAMIDE
     Dosage: 100 MILLIGRAM, QD
     Dates: start: 20211203
  38. LOVENOX [Concomitant]
     Active Substance: ENOXAPARIN SODIUM
  39. CHOLECALCIFEROL [Concomitant]
     Active Substance: CHOLECALCIFEROL
     Indication: Hypovitaminosis
     Dosage: UNK UNK, QD
     Dates: start: 20170803
  40. CYANOCOBALAMIN [Concomitant]
     Active Substance: CYANOCOBALAMIN
     Indication: Hypovitaminosis
     Dosage: 1000 MICROGRAM, QD
     Dates: start: 20160726
  41. CYANOCOBALAMIN [Concomitant]
     Active Substance: CYANOCOBALAMIN
     Indication: Malabsorption
     Dosage: 1000 MICROGRAM, Q2WEEKS
     Dates: start: 20230913
  42. ESCITALOPRAM [Concomitant]
     Active Substance: ESCITALOPRAM OXALATE
     Indication: Mixed anxiety and depressive disorder
     Dosage: 10 MILLIGRAM, QD
     Dates: start: 20160726, end: 20200122
  43. FENTANYL [Concomitant]
     Active Substance: FENTANYL
     Indication: Pain
     Dates: start: 20170803, end: 20200720
  44. FENTANYL [Concomitant]
     Active Substance: FENTANYL
     Dates: start: 20200807, end: 20200807
  45. FENTANYL [Concomitant]
     Active Substance: FENTANYL
     Dates: start: 20200810, end: 20200810
  46. Glutasolve [Concomitant]
     Indication: Malnutrition
  47. ONDANSETRON [Concomitant]
     Active Substance: ONDANSETRON
     Indication: Nausea
     Dates: start: 20200804, end: 20200825
  48. ONDANSETRON [Concomitant]
     Active Substance: ONDANSETRON
     Dates: start: 20210718, end: 20210729
  49. VANCOMYCIN [Concomitant]
     Active Substance: VANCOMYCIN
     Indication: Sepsis
     Dosage: 750 MILLIGRAM, QD
     Dates: start: 20200804, end: 20200811
  50. VANCOMYCIN [Concomitant]
     Active Substance: VANCOMYCIN
     Dosage: UNK UNK, BID
     Dates: start: 20200825, end: 20200826
  51. VANCOMYCIN [Concomitant]
     Active Substance: VANCOMYCIN
     Dosage: 1250 MILLIGRAM, QD
     Dates: start: 20200826, end: 20200831
  52. ROCEPHIN [Concomitant]
     Active Substance: CEFTRIAXONE SODIUM
     Indication: Sepsis
     Dosage: 2 GRAM, QD
     Dates: start: 20200804, end: 20200826
  53. TRILEPTAL [Concomitant]
     Active Substance: OXCARBAZEPINE
     Indication: Seizure
     Dosage: 150 MILLIGRAM, BID
     Dates: start: 20200805, end: 20200828
  54. HEPARIN [Concomitant]
     Active Substance: HEPARIN SODIUM
     Indication: Catheter removal
     Dates: start: 20200805, end: 20200805
  55. VITAMIN A [Concomitant]
     Active Substance: VITAMIN A
     Indication: Mineral deficiency
     Dosage: UNK UNK, QD
     Dates: start: 20200807, end: 20200812
  56. VITAMIN A [Concomitant]
     Active Substance: VITAMIN A
     Dosage: 3 MILLIGRAM, QD
     Dates: start: 20200813
  57. EFFEXOR [Concomitant]
     Active Substance: VENLAFAXINE HYDROCHLORIDE
     Indication: Depression
     Dosage: 37.5 MILLIGRAM, QD
     Dates: start: 20200124, end: 20200807
  58. EFFEXOR [Concomitant]
     Active Substance: VENLAFAXINE HYDROCHLORIDE
     Dosage: 25 MILLIGRAM, QD
     Dates: start: 20200807, end: 20200901
  59. MELATONIN [Concomitant]
     Active Substance: MELATONIN
     Indication: Insomnia
     Dates: start: 20200807, end: 20200901
  60. LIDOCAINE [Concomitant]
     Active Substance: LIDOCAINE
     Indication: Catheter removal
     Dates: start: 20200810, end: 20200810
  61. FLUCONAZOLE [Concomitant]
     Active Substance: FLUCONAZOLE
     Indication: Sepsis
     Dosage: 200 MILLIGRAM, QD
     Dates: start: 20200804, end: 20200806
  62. FLUCONAZOLE [Concomitant]
     Active Substance: FLUCONAZOLE
     Indication: Systemic candida
     Dosage: 800 MILLIGRAM, QD
     Dates: start: 20200827, end: 20200827
  63. FLUCONAZOLE [Concomitant]
     Active Substance: FLUCONAZOLE
     Dosage: 400 MILLIGRAM, QD
     Dates: start: 20200828, end: 20200831
  64. LEVAQUIN [Concomitant]
     Active Substance: LEVOFLOXACIN
     Indication: Urinary tract infection
     Dosage: 500 MILLIGRAM, QD
     Dates: start: 20200825
  65. LEVAQUIN [Concomitant]
     Active Substance: LEVOFLOXACIN
     Indication: Klebsiella infection
  66. POTASSIUM CHLORIDE [Concomitant]
     Active Substance: POTASSIUM CHLORIDE
     Indication: Hypokalaemia
  67. MICAFUNGIN [Concomitant]
     Active Substance: MICAFUNGIN SODIUM
     Indication: Urinary tract infection
     Dosage: 1000 MILLIGRAM, QD
     Dates: start: 20200831, end: 20200911
  68. MICAFUNGIN [Concomitant]
     Active Substance: MICAFUNGIN SODIUM
     Indication: Fungaemia
  69. SEROQUEL [Concomitant]
     Active Substance: QUETIAPINE FUMARATE
     Indication: Insomnia
     Dosage: 25 MILLIGRAM, BID
     Dates: start: 20200901, end: 20210928
  70. HALOPERIDOL [Concomitant]
     Active Substance: HALOPERIDOL
     Indication: Psychotic disorder
  71. ZITHROMAX [Concomitant]
     Active Substance: AZITHROMYCIN DIHYDRATE
     Indication: Pneumonia
     Dosage: 500 MILLIGRAM, QD
     Dates: start: 20200827, end: 20200829
  72. RISPERIDONE [Concomitant]
     Active Substance: RISPERIDONE
     Indication: Psychotic disorder
     Dosage: 1 MILLIGRAM, BID
     Dates: start: 20200901
  73. IPRATROPIUM [Concomitant]
     Active Substance: IPRATROPIUM
     Indication: Pneumonia
     Dates: start: 20200826, end: 20200827
  74. LORAZEPAM [Concomitant]
     Active Substance: LORAZEPAM
     Indication: Anxiety
     Dates: start: 20200826, end: 20200826
  75. FLAGYL [Concomitant]
     Active Substance: METRONIDAZOLE\METRONIDAZOLE HYDROCHLORIDE
     Indication: Sepsis
  76. ISOVUE [Concomitant]
     Active Substance: IOPAMIDOL
     Indication: Contrast media reaction
     Dates: start: 20211203, end: 20211203
  77. MYCAMINE [Concomitant]
     Active Substance: MICAFUNGIN SODIUM
     Indication: Candida infection
     Dosage: 150 MILLIGRAM, QD
     Dates: start: 20210718, end: 20210729
  78. PANTOPRAZOLE [Concomitant]
     Active Substance: PANTOPRAZOLE
     Indication: Nausea
     Dosage: 40 MILLIGRAM, QD
     Dates: start: 20210718, end: 20210729
  79. BENADRYL [Concomitant]
     Active Substance: DIPHENHYDRAMINE HYDROCHLORIDE
     Indication: Multiple allergies
     Dates: start: 20210718, end: 20210729
  80. DILAUDID [Concomitant]
     Active Substance: HYDROMORPHONE HYDROCHLORIDE
     Indication: Pain
     Dates: start: 20210724, end: 20210729
  81. ATIVAN [Concomitant]
     Active Substance: LORAZEPAM
     Indication: Anxiety
     Dates: start: 20210718, end: 20210729
  82. TECHNETIUM TC-99M ARCITUMOMAB [Concomitant]
     Active Substance: TECHNETIUM TC-99M ARCITUMOMAB
     Indication: Contrast media reaction
     Dates: start: 20210717, end: 20210717
  83. AMBIEN [Concomitant]
     Active Substance: ZOLPIDEM TARTRATE
     Indication: Insomnia
     Dates: start: 20210718, end: 20210729
  84. PERCOCET [Concomitant]
     Active Substance: ACETAMINOPHEN\OXYCODONE HYDROCHLORIDE
     Indication: Pain
  85. PERCOCET [Concomitant]
     Active Substance: ACETAMINOPHEN\OXYCODONE HYDROCHLORIDE
     Dates: start: 20210718, end: 20210729

REACTIONS (5)
  - Cholecystostomy [Recovered/Resolved]
  - Device dislocation [Recovered/Resolved]
  - Aspartate aminotransferase increased [Recovered/Resolved]
  - Anaemia [Recovered/Resolved]
  - Blood alkaline phosphatase increased [Recovered/Resolved]

NARRATIVE: CASE EVENT DATE: 20210928
